FAERS Safety Report 14627236 (Version 5)
Quarter: 2022Q3

REPORT INFORMATION
  Report Type: Spontaneous
  Country: CZ (occurrence: CZ)
  Receive Date: 20180312
  Receipt Date: 20220711
  Transmission Date: 20221027
  Serious: Yes (Other)
  Sender: FDA-Public Use
  Company Number: None

PATIENT
  Age: 59 Year
  Sex: Male

DRUGS (14)
  1. FLUCONAZOLE [Suspect]
     Active Substance: FLUCONAZOLE
     Indication: Anti-infective therapy
     Dosage: 200 MG, DAILY
     Dates: start: 20070530
  2. FLUCONAZOLE [Suspect]
     Active Substance: FLUCONAZOLE
     Indication: Anti-infective therapy
     Dosage: 800 MG, DAILY
     Route: 042
  3. CIPROFLOXACIN [Concomitant]
     Active Substance: CIPROFLOXACIN
     Indication: Antibiotic therapy
     Dosage: UNK
  4. CLARITHROMYCIN [Concomitant]
     Active Substance: CLARITHROMYCIN
     Indication: Antibiotic therapy
     Dosage: UNK
  5. CEFUROXIME AXETIL [Concomitant]
     Active Substance: CEFUROXIME AXETIL
     Indication: Antibiotic therapy
     Dosage: UNK
  6. KETOCONAZOLE [Concomitant]
     Active Substance: KETOCONAZOLE
     Indication: Antibiotic therapy
     Dosage: 400 MG, DAILY
     Route: 048
  7. PENICILLIN G [Concomitant]
     Active Substance: PENICILLIN G
     Indication: Anti-infective therapy
     Dosage: UNK
     Dates: start: 20070530
  8. ACYCLOVIR [Concomitant]
     Active Substance: ACYCLOVIR
     Indication: Anti-infective therapy
     Dosage: UNK
     Dates: start: 20070530
  9. METRONIDAZOLE [Concomitant]
     Active Substance: METRONIDAZOLE
     Dosage: UNK
  10. PHENYTOIN [Concomitant]
     Active Substance: PHENYTOIN
     Indication: Epilepsy
     Dosage: UNK
  11. PRIMIDONE [Concomitant]
     Active Substance: PRIMIDONE
     Indication: Epilepsy
     Dosage: UNK
  12. OMEPRAZOLE [Concomitant]
     Active Substance: OMEPRAZOLE
     Indication: Duodenal ulcer
     Dosage: UNK
  13. VORICONAZOLE [Concomitant]
     Active Substance: VORICONAZOLE
     Indication: Antifungal treatment
     Dosage: 200 MG, 2X/DAY
     Route: 042
     Dates: start: 20070612
  14. AMPHOTERICIN B [Concomitant]
     Active Substance: AMPHOTERICIN B
     Indication: Antifungal treatment
     Dosage: 1 MG/KG, DAILY

REACTIONS (3)
  - Drug ineffective [Unknown]
  - Meningeal disorder [Not Recovered/Not Resolved]
  - Condition aggravated [Not Recovered/Not Resolved]
